FAERS Safety Report 5067194-9 (Version None)
Quarter: 2006Q3

REPORT INFORMATION
  Report Type: 
  Country: None (occurrence: None)
  Receive Date: 20060727
  Receipt Date: 20060712
  Transmission Date: 20061208
  Serious: Yes (Death, Life-Threatening, Hospitalization)
  Sender: FDA-Public Use
  Company Number: 2006RR-03000

PATIENT
  Age: 24 Year
  Sex: Male

DRUGS (2)
  1. CODEINE PHOSPHATE [Suspect]
     Indication: HEADACHE
     Dosage: ORAL
     Route: 048
     Dates: start: 20060128, end: 20060129
  2. IBUPROFEN [Suspect]
     Indication: HEADACHE
     Dosage: ORAL
     Route: 048
     Dates: start: 20060128, end: 20060129

REACTIONS (10)
  - ARTHRALGIA [None]
  - EXSANGUINATION [None]
  - HAEMATURIA [None]
  - OXYGEN SATURATION DECREASED [None]
  - PHARYNGEAL HAEMORRHAGE [None]
  - PRODUCTIVE COUGH [None]
  - RESPIRATORY DISORDER [None]
  - SPUTUM DISCOLOURED [None]
  - TOXIC EPIDERMAL NECROLYSIS [None]
  - VOMITING [None]
